FAERS Safety Report 7386485-X (Version None)
Quarter: 2011Q1

REPORT INFORMATION
  Report Type: 
  Country: None (occurrence: None)
  Receive Date: 20110329
  Receipt Date: 20110329
  Transmission Date: 20110831
  Serious: Yes (Other)
  Sender: FDA-Public Use
  Company Number: None

PATIENT
  Age: 36 Year
  Sex: Female
  Weight: 54.8852 kg

DRUGS (1)
  1. LEVAQUIN [Suspect]
     Indication: PHARYNGITIS
     Dosage: 1 TABLET ONCE A DAY PO
     Route: 048
     Dates: start: 20110322, end: 20110324

REACTIONS (4)
  - DEHYDRATION [None]
  - RASH ERYTHEMATOUS [None]
  - MUSCLE FATIGUE [None]
  - NIGHTMARE [None]
